FAERS Safety Report 8466787-6 (Version None)
Quarter: 2012Q2

REPORT INFORMATION
  Report Type: 
  Country: None (occurrence: None)
  Receive Date: 20120619
  Receipt Date: 20120611
  Transmission Date: 20120825
  Serious: Yes (Death, Other)
  Sender: FDA-Public Use
  Company Number: ADR-2012-00804

PATIENT
  Sex: Male

DRUGS (2)
  1. BACLOFEN [Suspect]
     Indication: MUSCLE SPASTICITY
     Dosage: SEE B5
  2. BACLOFEN [Suspect]
     Indication: MULTIPLE SCLEROSIS
     Dosage: SEE B5

REACTIONS (1)
  - DRUG WITHDRAWAL SYNDROME [None]
